FAERS Safety Report 6334777-5 (Version None)
Quarter: 2009Q3

REPORT INFORMATION
  Report Type: 
  Country: None (occurrence: None)
  Receive Date: 20090826
  Receipt Date: 20090814
  Transmission Date: 20100115
  Serious: Yes (Other)
  Sender: FDA-Public Use
  Company Number: DEP_00289_2009

PATIENT
  Sex: Female

DRUGS (1)
  1. PROQUIN XR [Suspect]
     Indication: DRUG USE FOR UNKNOWN INDICATION
     Dosage: (1 DF QD ORAL)
     Route: 048
     Dates: start: 20090813

REACTIONS (5)
  - DYSPNOEA [None]
  - GENERALISED ERYTHEMA [None]
  - MENTAL IMPAIRMENT [None]
  - MUSCULAR WEAKNESS [None]
  - PARAESTHESIA [None]
